FAERS Safety Report 4796368-7 (Version None)
Quarter: 2005Q4

REPORT INFORMATION
  Report Type: 
  Country: None (occurrence: None)
  Receive Date: 20051006
  Receipt Date: 20051006
  Transmission Date: 20060501
  Serious: Yes (Life-Threatening, Hospitalization)
  Sender: FDA-Public Use
  Company Number: None

PATIENT
  Age: 21 Year
  Sex: Male
  Weight: 100 kg

DRUGS (4)
  1. FLUTICASONE PROPIONATE [Suspect]
     Indication: ASTHMA
     Dosage: 250 INHALED
     Route: 055
  2. SALMETEROL [Suspect]
     Indication: ASTHMA
     Dosage: 50 MCG INHALED
     Route: 055
  3. LANSOPRAZOLE [Concomitant]
  4. ALBUTEROL [Concomitant]

REACTIONS (6)
  - BODY TEMPERATURE INCREASED [None]
  - DYSPNOEA [None]
  - HEART RATE INCREASED [None]
  - MEDICATION ERROR [None]
  - PAINFUL RESPIRATION [None]
  - TREATMENT NONCOMPLIANCE [None]
